FAERS Safety Report 5294402-1 (Version None)
Quarter: 2007Q2

REPORT INFORMATION
  Report Type: 
  Country: None (occurrence: None)
  Receive Date: 20070409
  Receipt Date: 20070409
  Transmission Date: 20071010
  Serious: Yes (Other)
  Sender: FDA-Public Use
  Company Number: None

PATIENT
  Age: 18 Year
  Sex: Female
  Weight: 52 kg

DRUGS (1)
  1. LITHIUM CARBONATE [Suspect]
     Indication: BIPOLAR DISORDER
     Dosage: 1,800 MG/DAY 3 TIMES A DAY
     Dates: start: 20040929, end: 20070407

REACTIONS (2)
  - HEPATIC FAILURE [None]
  - THYROID DISORDER [None]
